FAERS Safety Report 13337019 (Version 4)
Quarter: 2018Q2

REPORT INFORMATION
  Report Type: Report from Study
  Country: US (occurrence: US)
  Receive Date: 20170314
  Receipt Date: 20180427
  Transmission Date: 20180711
  Serious: Yes (Other)
  Sender: FDA-Public Use
  Company Number: US-JAZZ-2017-US-003223

PATIENT
  Sex: Female

DRUGS (5)
  1. IRON [Suspect]
     Active Substance: IRON
     Indication: ANAEMIA
     Dosage: UNK
  2. XYREM [Suspect]
     Active Substance: SODIUM OXYBATE
     Indication: CATAPLEXY
     Dosage: UNK
  3. OXITRIPTAN [Suspect]
     Active Substance: OXITRIPTAN
     Indication: PRODUCT USED FOR UNKNOWN INDICATION
  4. MELATONIN [Suspect]
     Active Substance: MELATONIN
     Indication: PRODUCT USED FOR UNKNOWN INDICATION
  5. XYREM [Suspect]
     Active Substance: SODIUM OXYBATE
     Indication: NARCOLEPSY
     Dosage: 2.25 G, BID
     Route: 048
     Dates: start: 200405, end: 20040715

REACTIONS (11)
  - Hunger [Unknown]
  - Food allergy [Unknown]
  - Nightmare [Unknown]
  - Vulvovaginal dryness [Unknown]
  - Enuresis [Recovered/Resolved]
  - Malaise [Unknown]
  - Incontinence [Recovered/Resolved]
  - Toothache [Unknown]
  - Nausea [Unknown]
  - Bacterial vaginosis [Unknown]
  - Unevaluable event [Unknown]
